FAERS Safety Report 4429575-3 (Version None)
Quarter: 2004Q3

REPORT INFORMATION
  Report Type: 
  Country: None (occurrence: None)
  Receive Date: 20040816
  Receipt Date: 20040805
  Transmission Date: 20050211
  Serious: Yes (Other)
  Sender: FDA-Public Use
  Company Number: 2004EU001513

PATIENT
  Age: 31 Year
  Sex: Male

DRUGS (3)
  1. FK506 (TACROLIMUS) FORMULATION UNKNOWN [Suspect]
     Indication: LIVER TRANSPLANT
     Dosage: 6.00 MG, D
  2. PREDNISONE [Concomitant]
  3. FUROSEMIDE [Concomitant]

REACTIONS (3)
  - ARTHRITIS [None]
  - GOUT [None]
  - NERVE COMPRESSION [None]
